FAERS Safety Report 20126578 (Version 3)
Quarter: 2021Q4

REPORT INFORMATION
  Report Type: Report from Study
  Country: DE (occurrence: DE)
  Receive Date: 20211129
  Receipt Date: 20211228
  Transmission Date: 20220303
  Serious: Yes (Death, Hospitalization)
  Sender: FDA-Public Use
  Company Number: DE-EXELIXIS-XL18421046415

PATIENT

DRUGS (20)
  1. CABOZANTINIB [Suspect]
     Active Substance: CABOZANTINIB
     Indication: Papillary renal cell carcinoma
     Dosage: 40 MG, QD
     Route: 048
     Dates: start: 20210216, end: 20210418
  2. CABOZANTINIB [Suspect]
     Active Substance: CABOZANTINIB
     Dosage: 60 MG
     Route: 048
     Dates: start: 20210419, end: 20210705
  3. CABOZANTINIB [Suspect]
     Active Substance: CABOZANTINIB
     Dosage: 60 MG
     Route: 048
     Dates: start: 202107, end: 20210712
  4. CABOZANTINIB [Suspect]
     Active Substance: CABOZANTINIB
     Dosage: 30 MG
     Route: 048
     Dates: start: 20210717, end: 202107
  5. CABOZANTINIB [Suspect]
     Active Substance: CABOZANTINIB
     Dosage: 40 MG
     Route: 048
     Dates: start: 20210719, end: 202107
  6. CABOZANTINIB [Suspect]
     Active Substance: CABOZANTINIB
     Dosage: 60 MG
     Route: 048
     Dates: start: 20210729, end: 20210820
  7. CABOZANTINIB [Suspect]
     Active Substance: CABOZANTINIB
     Dosage: 60 MG
     Route: 048
     Dates: start: 202108, end: 20210825
  8. LOPERAMIDE HYDROCHLORIDE [Concomitant]
     Active Substance: LOPERAMIDE HYDROCHLORIDE
     Dosage: 4 MG, QID
     Route: 048
     Dates: start: 20210706, end: 20210712
  9. ALLOPURINOL [Concomitant]
     Active Substance: ALLOPURINOL
  10. CINACALCET [Concomitant]
     Active Substance: CINACALCET
  11. CHOLECALCIFEROL [Concomitant]
     Active Substance: CHOLECALCIFEROL
  12. ALFACALCIDOL [Concomitant]
     Active Substance: ALFACALCIDOL
  13. HEPARIN SODIUM [Concomitant]
     Active Substance: HEPARIN SODIUM
  14. LEVOTHYROXINE SODIUM [Concomitant]
     Active Substance: LEVOTHYROXINE SODIUM
  15. LANTUS [Concomitant]
     Active Substance: INSULIN GLARGINE
  16. INSULIN LISPRO [Concomitant]
     Active Substance: INSULIN LISPRO
  17. MIRTAZAPINE [Concomitant]
     Active Substance: MIRTAZAPINE
  18. PANTOPRAZOLE [Concomitant]
     Active Substance: PANTOPRAZOLE
  19. SEVELAMERCARBONAT HEXAL [Concomitant]
  20. OXYCODON HCL RATIOPHARM [Concomitant]

REACTIONS (7)
  - General physical health deterioration [Unknown]
  - Diarrhoea [Recovered/Resolved]
  - Vomiting [Unknown]
  - Nausea [Unknown]
  - Asymptomatic COVID-19 [Fatal]
  - Drug intolerance [Unknown]
  - Fatigue [Not Recovered/Not Resolved]

NARRATIVE: CASE EVENT DATE: 20210426
